FAERS Safety Report 16408629 (Version 3)
Quarter: 2019Q3

REPORT INFORMATION
  Report Type: Spontaneous
  Country: JP (occurrence: JP)
  Receive Date: 20190610
  Receipt Date: 20190709
  Transmission Date: 20191004
  Serious: Yes (Other)
  Sender: FDA-Public Use
  Company Number: JP-ROCHE-2333219

PATIENT
  Age: 73 Year
  Sex: Male
  Weight: 43 kg

DRUGS (7)
  1. HIRUDOID [Concomitant]
     Active Substance: GLYCOSAMINOGLYCANS
     Dosage: DOSAGE IS UNCERTAIN.
     Route: 061
  2. TS-1 [Concomitant]
     Active Substance: GIMERACIL\OTERACIL\TEGAFUR
     Indication: RECTAL CANCER
     Dosage: DOSAGE IS UNCERTAIN.
     Route: 048
     Dates: start: 20180726
  3. AVASTIN [Suspect]
     Active Substance: BEVACIZUMAB
     Indication: RECTAL CANCER
     Route: 041
     Dates: start: 20180726, end: 20181122
  4. TOPOTECIN [Concomitant]
     Active Substance: IRINOTECAN HYDROCHLORIDE
     Indication: RECTAL CANCER
     Dosage: DOSAGE IS UNCERTAIN.
     Route: 041
     Dates: start: 20180726
  5. ORTEXER [Concomitant]
     Dosage: DOSAGE IS UNCERTAIN.
     Route: 050
  6. EMEND [Concomitant]
     Active Substance: APREPITANT
     Dosage: DOSAGE IS UNCERTAIN.
     Route: 065
     Dates: start: 20180726
  7. IRINOTECAN HYDROCHLORIDE TRIHYDRATE [IRINOTECAN HYDROCHLORIDE] [Concomitant]
     Active Substance: IRINOTECAN HYDROCHLORIDE
     Indication: COLON CANCER
     Dosage: DOSAGE IS UNCERTAIN.
     Route: 041

REACTIONS (3)
  - Visual acuity reduced [Recovering/Resolving]
  - Cataract [Unknown]
  - Corneal disorder [Recovering/Resolving]

NARRATIVE: CASE EVENT DATE: 201811
